FAERS Safety Report 25851788 (Version 1)
Quarter: 2025Q3

REPORT INFORMATION
  Report Type: Spontaneous
  Country: EU (occurrence: EU)
  Receive Date: 20250926
  Receipt Date: 20250926
  Transmission Date: 20251021
  Serious: Yes (Other)
  Sender: NOVO NORDISK
  Company Number: EU-NOVOPROD-1529796

PATIENT

DRUGS (1)
  1. NOVOSEVEN [Suspect]
     Active Substance: COAGULATION FACTOR VIIA RECOMBINANT HUMAN
     Indication: Glanzmann^s disease
     Route: 064

REACTIONS (3)
  - Thrombocytopenia neonatal [Unknown]
  - Contusion [Unknown]
  - Foetal exposure during pregnancy [Recovered/Resolved]
